FAERS Safety Report 9310555 (Version 1)
Quarter: 2013Q2

REPORT INFORMATION
  Report Type: Spontaneous
  Country: US (occurrence: US)
  Receive Date: 20130527
  Receipt Date: 20130527
  Transmission Date: 20140414
  Serious: No
  Sender: FDA-Public Use
  Company Number: US-PFIZER INC-2013160832

PATIENT
  Age: 53 Year
  Sex: Male
  Weight: 95.2 kg

DRUGS (5)
  1. PRISTIQ [Suspect]
     Indication: ANXIETY
     Dosage: 50MG DAILY
     Dates: start: 201210, end: 20130518
  2. PRISTIQ [Suspect]
     Indication: DEPRESSION
  3. XANAX [Suspect]
     Indication: ANXIETY
     Dosage: 0.5 MG, AS NEEDED
  4. XANAX [Suspect]
     Indication: DEPRESSION
  5. LOSARTAN POTASSIUM W/HYDROCHLOROTHIAZIDE [Concomitant]
     Indication: HYPERTENSION
     Dosage: 12.5 MG DAILY

REACTIONS (3)
  - Drug ineffective [Recovering/Resolving]
  - Headache [Recovering/Resolving]
  - Off label use [Unknown]
